FAERS Safety Report 14073964 (Version 1)
Quarter: 2017Q4

REPORT INFORMATION
  Report Type: Spontaneous
  Country: CN (occurrence: CN)
  Receive Date: 20171011
  Receipt Date: 20171011
  Transmission Date: 20180321
  Serious: Yes (Hospitalization, Other)
  Sender: FDA-Public Use
  Company Number: CN-PFIZER INC-2017436629

PATIENT
  Age: 67 Year
  Sex: Male
  Weight: 73 kg

DRUGS (3)
  1. ORNITHINE ASPARTATE [Concomitant]
     Active Substance: ORNITHINE ASPARTATE
     Indication: COMA HEPATIC
     Dosage: 2.5 G, 2X/DAY (Q12H)
     Route: 041
     Dates: start: 20170723, end: 20170815
  2. LV TING NUO [Concomitant]
     Indication: PROPHYLAXIS
     Dosage: 1.2 G, 1X/DAY (QD)
     Route: 041
     Dates: start: 20170723, end: 20170815
  3. CELECOXIB. [Suspect]
     Active Substance: CELECOXIB
     Indication: ANALGESIC THERAPY
     Dosage: 0.4 G, 1X/DAY (QD)
     Route: 048
     Dates: start: 20170812, end: 20170813

REACTIONS (3)
  - Condition aggravated [Recovered/Resolved]
  - Psychotic disorder [Recovered/Resolved]
  - Coma hepatic [Recovered/Resolved]

NARRATIVE: CASE EVENT DATE: 20170812
